FAERS Safety Report 9849227 (Version 2)
Quarter: 2014Q2

REPORT INFORMATION
  Report Type: Spontaneous
  Country: JP (occurrence: JP)
  Receive Date: 20140128
  Receipt Date: 20140521
  Transmission Date: 20141212
  Serious: Yes (Hospitalization, Other)
  Sender: FDA-Public Use
  Company Number: PHHY2014JP009321

PATIENT
  Age: 82 Year
  Sex: Male
  Weight: 57 kg

DRUGS (1)
  1. ZOMETA [Suspect]
     Indication: METASTASES TO BONE
     Dosage: 4 MG, PER ADMINISTRATION
     Route: 042
     Dates: start: 20071207, end: 20090731

REACTIONS (7)
  - Osteonecrosis of jaw [Recovered/Resolved]
  - Erythema [Not Recovered/Not Resolved]
  - Impaired healing [Not Recovered/Not Resolved]
  - Gingival swelling [Recovered/Resolved]
  - Gingivitis [Recovered/Resolved]
  - Exposed bone in jaw [Recovered/Resolved]
  - Bone lesion [Recovered/Resolved]
